FAERS Safety Report 9551294 (Version 2)
Quarter: 2013Q4

REPORT INFORMATION
  Report Type: Spontaneous
  Country: US (occurrence: US)
  Receive Date: 20130925
  Receipt Date: 20131018
  Transmission Date: 20140711
  Serious: Yes (Hospitalization, Other)
  Sender: FDA-Public Use
  Company Number: US-MERCK-1309USA008571

PATIENT
  Age: 81 Year
  Sex: Female

DRUGS (1)
  1. JANUVIA [Suspect]
     Indication: DIABETES MELLITUS
     Dosage: 100 MG, QD
     Route: 048
     Dates: start: 20130904, end: 20130907

REACTIONS (3)
  - Confusional state [Recovering/Resolving]
  - Pancreatitis [Recovering/Resolving]
  - Hallucination [Recovering/Resolving]
